FAERS Safety Report 8968117 (Version 4)
Quarter: 2013Q4

REPORT INFORMATION
  Report Type: Spontaneous
  Country: KR (occurrence: KR)
  Receive Date: 20121218
  Receipt Date: 20131213
  Transmission Date: 20140711
  Serious: Yes (Other)
  Sender: FDA-Public Use
  Company Number: KR-009507513-1212KOR006111

PATIENT
  Age: 53 Year
  Sex: Female

DRUGS (1)
  1. IMPLANON [Suspect]
     Dosage: UNK
     Dates: start: 20110129

REACTIONS (3)
  - Surgery [Unknown]
  - Device dislocation [Recovered/Resolved]
  - Medical device complication [Recovered/Resolved]
